FAERS Safety Report 11343129 (Version 1)
Quarter: 2015Q3

REPORT INFORMATION
  Report Type: Spontaneous
  Country: US (occurrence: US)
  Receive Date: 20150806
  Receipt Date: 20150806
  Transmission Date: 20151125
  Serious: Yes (Other)
  Sender: FDA-Public Use
  Company Number: US-ROCHE-1616781

PATIENT
  Age: 64 Year
  Sex: Female

DRUGS (1)
  1. XOLAIR [Suspect]
     Active Substance: OMALIZUMAB
     Indication: ASTHMA
     Route: 058
     Dates: start: 20150603

REACTIONS (2)
  - Pruritus generalised [Not Recovered/Not Resolved]
  - Arthropathy [Recovering/Resolving]

NARRATIVE: CASE EVENT DATE: 20150714
